FAERS Safety Report 19159517 (Version 2)
Quarter: 2021Q3

REPORT INFORMATION
  Report Type: Spontaneous
  Country: FR (occurrence: FR)
  Receive Date: 20210420
  Receipt Date: 20210812
  Transmission Date: 20211014
  Serious: Yes (Hospitalization, Other)
  Sender: FDA-Public Use
  Company Number: FR-VISTAPHARM, INC.-VER202104-001142

PATIENT
  Age: 44 Year
  Sex: Male

DRUGS (3)
  1. METHADONE [Suspect]
     Active Substance: METHADONE HYDROCHLORIDE
     Indication: DRUG DEPENDENCE
     Dosage: 120 MG/DAY
  2. NALTREXONE [Suspect]
     Active Substance: NALTREXONE
     Indication: ALCOHOLISM
     Dosage: 50 MG/D
  3. MIDAZOLAM. [Concomitant]
     Active Substance: MIDAZOLAM
     Indication: SEDATION
     Dosage: 10 MG
     Route: 042

REACTIONS (7)
  - Drug interaction [Unknown]
  - Agitation [Unknown]
  - Tachycardia [Unknown]
  - Hallucination [Unknown]
  - Stress cardiomyopathy [Unknown]
  - Drug withdrawal syndrome [Unknown]
  - Pyrexia [Unknown]
